FAERS Safety Report 6120681-4 (Version None)
Quarter: 2009Q1

REPORT INFORMATION
  Report Type: 
  Country: None (occurrence: None)
  Receive Date: 20090312
  Receipt Date: 20090312
  Transmission Date: 20090719
  Serious: Yes (Life-Threatening, Hospitalization)
  Sender: FDA-Public Use
  Company Number: None

PATIENT
  Age: 30 Year
  Sex: Female

DRUGS (4)
  1. ZOLOFT [Suspect]
     Indication: INSOMNIA
     Dosage: 200 MG X1 PO UNKNOWN
     Route: 048
  2. ZOLOFT [Suspect]
     Indication: STRESS
     Dosage: 200 MG X1 PO UNKNOWN
     Route: 048
  3. CYPROHEPTADINE HCL [Concomitant]
  4. ATIVAN [Concomitant]

REACTIONS (5)
  - DYSARTHRIA [None]
  - DYSPHEMIA [None]
  - SEROTONIN SYNDROME [None]
  - SYNCOPE [None]
  - TREMOR [None]
